FAERS Safety Report 19092668 (Version 2)
Quarter: 2023Q1

REPORT INFORMATION
  Report Type: Other
  Country: ES (occurrence: None)
  Receive Date: 20210405
  Receipt Date: 20230210
  Transmission Date: 20230417
  Serious: Yes (Hospitalization)
  Sender: FDA-Public Use
  Company Number: ES-ROCHE-2803827

PATIENT
  Age: 62 Year
  Sex: Male

DRUGS (12)
  1. RITUXIMAB [Suspect]
     Active Substance: RITUXIMAB
     Indication: Follicular lymphoma
     Route: 058
     Dates: start: 20190905
  2. RITUXIMAB [Suspect]
     Active Substance: RITUXIMAB
     Dosage: FINISHED 6TH CYCLE
     Route: 058
     Dates: end: 20200124
  3. RITUXIMAB [Suspect]
     Active Substance: RITUXIMAB
     Route: 058
  4. CYCLOPHOSPHAMIDE [Suspect]
     Active Substance: CYCLOPHOSPHAMIDE
     Indication: Follicular lymphoma
     Route: 065
     Dates: start: 20190905
  5. CYCLOPHOSPHAMIDE [Suspect]
     Active Substance: CYCLOPHOSPHAMIDE
     Dosage: FINISHED 6TH CYCLE
     Route: 065
     Dates: end: 20200124
  6. DOXORUBICIN [Suspect]
     Active Substance: DOXORUBICIN
     Indication: Follicular lymphoma
     Route: 065
     Dates: start: 20190905
  7. DOXORUBICIN [Suspect]
     Active Substance: DOXORUBICIN
     Dosage: FINISHED 6TH CYCLE
     Route: 065
     Dates: end: 20200124
  8. VINCRISTINE [Suspect]
     Active Substance: VINCRISTINE
     Indication: Follicular lymphoma
     Route: 065
     Dates: start: 20190905
  9. VINCRISTINE [Suspect]
     Active Substance: VINCRISTINE
     Dosage: FINISHED 6TH CYCLE
     Route: 065
     Dates: end: 20200124
  10. PREDNISONE [Suspect]
     Active Substance: PREDNISONE
     Indication: Follicular lymphoma
     Route: 065
     Dates: start: 20190905
  11. PREDNISONE [Suspect]
     Active Substance: PREDNISONE
     Dosage: FINISHED 6TH CYCLE
     Route: 065
     Dates: end: 20200124
  12. GRANULOCYTE COLONY-STIMULATING FACTOR NOS [Concomitant]
     Active Substance: GRANULOCYTE COLONY-STIMULATING FACTOR NOS

REACTIONS (3)
  - Pneumonia cytomegaloviral [Recovered/Resolved]
  - COVID-19 [Recovered/Resolved]
  - Hypogammaglobulinaemia [Unknown]
